FAERS Safety Report 9891669 (Version 1)
Quarter: 2014Q1

REPORT INFORMATION
  Report Type: Spontaneous
  Country: US (occurrence: None)
  Receive Date: 20140211
  Receipt Date: 20140211
  Transmission Date: 20141002
  Serious: Yes (Life-Threatening)
  Sender: FDA-Public Use
  Company Number: None

PATIENT
  Age: 61 Year
  Sex: Male
  Weight: 71 kg

DRUGS (8)
  1. VINORELBINE [Suspect]
     Indication: HEAD AND NECK CANCER METASTATIC
     Dosage: 58 MG FIRST DOSE INTRAVENOUS
     Route: 042
  2. OXYCODONE [Concomitant]
  3. LIPITOR [Concomitant]
  4. TAMSULOSIN [Concomitant]
  5. ANDROGEL [Concomitant]
  6. CITALOPRAM [Concomitant]
  7. MULTIPLE VITAMIN DAILY [Concomitant]
  8. OMEPRAZOLE [Concomitant]

REACTIONS (5)
  - Unresponsive to stimuli [None]
  - Hyperhidrosis [None]
  - Mental status changes [None]
  - Coma scale abnormal [None]
  - Infection [None]
